FAERS Safety Report 6738185-4 (Version None)
Quarter: 2010Q2

REPORT INFORMATION
  Report Type: 
  Country: None (occurrence: None)
  Receive Date: 20100520
  Receipt Date: 20100511
  Transmission Date: 20101027
  Serious: Yes (Hospitalization)
  Sender: FDA-Public Use
  Company Number: 8054457

PATIENT
  Sex: Female
  Weight: 61.8 kg

DRUGS (6)
  1. CERTOLIZUMAB PEGOL [Suspect]
     Indication: RHEUMATOID ARTHRITIS
     Dosage: (400 MG, NR OF DOSES :2 SUBCUTANEOUS)
     Route: 058
     Dates: start: 20091015, end: 20091110
  2. PLAQUENIL [Concomitant]
  3. ALEVE [Concomitant]
  4. BONIVA [Concomitant]
  5. DIOVAN /01319601/ [Concomitant]
  6. LANTUS [Concomitant]

REACTIONS (15)
  - ADENOCARCINOMA PANCREAS [None]
  - ALANINE AMINOTRANSFERASE INCREASED [None]
  - AMMONIA INCREASED [None]
  - ANAEMIA [None]
  - ASPARTATE AMINOTRANSFERASE INCREASED [None]
  - BLOOD PRESSURE SYSTOLIC DECREASED [None]
  - FLUID OVERLOAD [None]
  - HYPERBILIRUBINAEMIA [None]
  - HYPERGLYCAEMIA [None]
  - HYPOCOAGULABLE STATE [None]
  - JAUNDICE [None]
  - PULMONARY OEDEMA [None]
  - SEPSIS [None]
  - URINARY TRACT INFECTION [None]
  - UROSEPSIS [None]
